FAERS Safety Report 9920840 (Version 2)
Quarter: 2014Q1

REPORT INFORMATION
  Report Type: Report from Study
  Country: AU (occurrence: AU)
  Receive Date: 20140225
  Receipt Date: 20140225
  Transmission Date: 20141002
  Serious: Yes (Other)
  Sender: FDA-Public Use
  Company Number: AU-ROCHE-1311872

PATIENT
  Age: 65 Year
  Sex: 0

DRUGS (3)
  1. PEG-INTERFERON ALFA 2A [Suspect]
     Indication: CHRONIC HEPATITIS C
     Route: 065
     Dates: start: 2013
  2. RIBAVIRIN [Interacting]
     Indication: CHRONIC HEPATITIS C
     Route: 065
     Dates: start: 2013
  3. BOCEPREVIR [Interacting]
     Indication: CHRONIC HEPATITIS C
     Route: 065
     Dates: start: 2013

REACTIONS (3)
  - Renal failure acute [Recovering/Resolving]
  - Hepatic cirrhosis [Unknown]
  - Nephropathy toxic [Unknown]
